FAERS Safety Report 8772007 (Version 2)
Quarter: 2012Q4

REPORT INFORMATION
  Report Type: 
  Country: US (occurrence: US)
  Receive Date: 20120906
  Receipt Date: 20121022
  Transmission Date: 20130627
  Serious: Yes (Other)
  Sender: FDA-Public Use
  Company Number: US-JNJFOC-20100803527

PATIENT
  Age: 65 Year
  Sex: Female

DRUGS (4)
  1. LEVAQUIN [Suspect]
     Indication: CHRONIC SINUSITIS
     Route: 048
  2. CIPRO [Suspect]
     Indication: CHRONIC SINUSITIS
     Route: 048
  3. DEPO-MEDROL [Suspect]
     Indication: CHRONIC SINUSITIS
     Route: 065
  4. AVELOX [Suspect]
     Indication: PRODUCT USED FOR UNKNOWN INDICATION
     Route: 048

REACTIONS (3)
  - Rotator cuff syndrome [Recovering/Resolving]
  - Tendon rupture [Recovering/Resolving]
  - Rotator cuff syndrome [Recovering/Resolving]
